FAERS Safety Report 5843399-1 (Version None)
Quarter: 2008Q3

REPORT INFORMATION
  Report Type: 
  Country: None (occurrence: None)
  Receive Date: 20080813
  Receipt Date: 20080807
  Transmission Date: 20090109
  Serious: Yes (Other)
  Sender: FDA-Public Use
  Company Number: A0741591A

PATIENT
  Age: 15 Year
  Sex: Female

DRUGS (1)
  1. LAMICTAL [Suspect]
     Dosage: 150MG TWICE PER DAY
     Route: 048
     Dates: start: 20080501

REACTIONS (5)
  - BALANCE DISORDER [None]
  - CONTUSION [None]
  - CONVULSION [None]
  - HEADACHE [None]
  - LOCAL SWELLING [None]
